FAERS Safety Report 6687670-2 (Version None)
Quarter: 2010Q2

REPORT INFORMATION
  Report Type: 
  Country: None (occurrence: None)
  Receive Date: 20100415
  Receipt Date: 20100408
  Transmission Date: 20101027
  Serious: Yes (Life-Threatening, Hospitalization, Other)
  Sender: FDA-Public Use
  Company Number: 100120-0000078

PATIENT
  Sex: Female

DRUGS (7)
  1. INDOCIN [Suspect]
     Indication: PATENT DUCTUS ARTERIOSUS
     Dosage: 0.08 MG;  ; IVDRP
     Route: 041
     Dates: start: 20090531, end: 20090601
  2. SURFACTEN [Concomitant]
  3. VICCILLIN [Concomitant]
  4. GENTAMICIN [Concomitant]
  5. DOPAMINE HCL [Concomitant]
  6. FUTHAN [Concomitant]
  7. ANTHROBIN P [Concomitant]

REACTIONS (13)
  - ACUTE PULMONARY OEDEMA [None]
  - ACUTE RESPIRATORY DISTRESS SYNDROME [None]
  - ATELECTASIS [None]
  - CARDIAC FAILURE [None]
  - CIRCULATORY COLLAPSE [None]
  - HYPOXIA [None]
  - INFECTION [None]
  - LUNG DISORDER [None]
  - OLIGURIA [None]
  - PULMONARY HAEMORRHAGE [None]
  - PULMONARY HYPERTENSION [None]
  - RESPIRATORY DISORDER [None]
  - THERAPEUTIC RESPONSE DECREASED [None]
